FAERS Safety Report 9302602 (Version 1)
Quarter: 2013Q2

REPORT INFORMATION
  Report Type: Spontaneous
  Country: US (occurrence: US)
  Receive Date: 20130522
  Receipt Date: 20130522
  Transmission Date: 20140414
  Serious: Yes (Other)
  Sender: FDA-Public Use
  Company Number: US-PFIZER INC-2013156381

PATIENT
  Age: 85 Year
  Sex: Female
  Weight: 62.6 kg

DRUGS (2)
  1. ADVIL [Suspect]
     Indication: OSTEOARTHRITIS
     Dosage: UNK, 3X/DAY
     Route: 048
     Dates: end: 20130519
  2. NORVASC [Concomitant]
     Indication: HYPERTENSION
     Dosage: UNK

REACTIONS (3)
  - Aphagia [Unknown]
  - Abdominal discomfort [Unknown]
  - Drug intolerance [Unknown]
